FAERS Safety Report 12325649 (Version 1)
Quarter: 2016Q2

REPORT INFORMATION
  Report Type: Report from Study
  Country: DE (occurrence: DE)
  Receive Date: 20160503
  Receipt Date: 20160503
  Transmission Date: 20160815
  Serious: Yes (Hospitalization)
  Sender: FDA-Public Use
  Company Number: DE-ROCHE-737368

PATIENT
  Age: 58 Year
  Sex: Female
  Weight: 78 kg

DRUGS (5)
  1. DECORTIN [Concomitant]
     Active Substance: PREDNISONE
     Route: 048
  2. TOCILIZUMAB [Suspect]
     Active Substance: TOCILIZUMAB
     Indication: RHEUMATOID ARTHRITIS
     Dosage: FURTHER APPLICATIONS ON 25-JUL-2010 AND 21-SEP-2010
     Route: 042
     Dates: start: 20100706, end: 20110310
  3. VALORON N [Concomitant]
     Active Substance: NALOXONE HYDROCHLORIDE\TILIDINE HYDROCHLORIDE
     Route: 065
  4. ARCOXIA [Concomitant]
     Active Substance: ETORICOXIB
     Route: 048
  5. METHOTREXATE [Concomitant]
     Active Substance: METHOTREXATE
     Indication: RHEUMATOID ARTHRITIS
     Route: 058
     Dates: start: 19980101, end: 20110316

REACTIONS (3)
  - Joint dislocation [Recovering/Resolving]
  - Device dislocation [Recovered/Resolved with Sequelae]
  - Lower limb fracture [Recovering/Resolving]

NARRATIVE: CASE EVENT DATE: 20100903
